FAERS Safety Report 9370067 (Version 1)
Quarter: 2013Q2

REPORT INFORMATION
  Report Type: Spontaneous
  Country: US (occurrence: US)
  Receive Date: 20130626
  Receipt Date: 20130626
  Transmission Date: 20140414
  Serious: Yes (Hospitalization)
  Sender: FDA-Public Use
  Company Number: US-ALEXION-A201301439

PATIENT
  Age: 42 Year
  Sex: Female

DRUGS (3)
  1. SOLIRIS 300MG [Suspect]
     Indication: HAEMOLYTIC URAEMIC SYNDROME
     Dosage: UNK
     Route: 042
  2. SOLIRIS 300MG [Suspect]
     Dosage: UNK, SINGLE
     Route: 042
     Dates: start: 20130609, end: 20130609
  3. SOLIRIS 300MG [Suspect]
     Dosage: UNK, SINGLE
     Route: 042
     Dates: start: 20130611, end: 20130611

REACTIONS (1)
  - Renal transplant [Unknown]
